FAERS Safety Report 4526667-5 (Version None)
Quarter: 2004Q4

REPORT INFORMATION
  Report Type: 
  Country: None (occurrence: None)
  Receive Date: 20041214
  Receipt Date: 20041201
  Transmission Date: 20050328
  Serious: Yes (Hospitalization, Congenital Anomaly)
  Sender: FDA-Public Use
  Company Number: FR-GLAXOSMITHKLINE-B0359290A

PATIENT
  Sex: Female
  Weight: 3 kg

DRUGS (2)
  1. COMBIVIR [Suspect]
     Indication: ANTIVIRAL PROPHYLAXIS
     Dosage: 1TAB TWICE PER DAY
     Dates: start: 20030825, end: 20030924
  2. VIRACEPT [Suspect]
     Indication: ANTIVIRAL PROPHYLAXIS
     Dosage: 1250MG TWICE PER DAY
     Dates: start: 20030825, end: 20030924

REACTIONS (5)
  - ANAL ATRESIA [None]
  - CONGENITAL ANOMALY [None]
  - DRUG EXPOSURE DURING PREGNANCY [None]
  - GASTROINTESTINAL MALFORMATION [None]
  - PERINEAL FISTULA [None]
